FAERS Safety Report 22588494 (Version 2)
Quarter: 2023Q2

REPORT INFORMATION
  Report Type: Report from Study
  Country: FR (occurrence: FR)
  Receive Date: 20230612
  Receipt Date: 20230623
  Transmission Date: 20230722
  Serious: Yes (Hospitalization)
  Sender: FDA-Public Use
  Company Number: FR-002147023-NVSC2023FR013978

PATIENT
  Age: 67 Year
  Sex: Female
  Weight: 48 kg

DRUGS (5)
  1. PIQRAY [Suspect]
     Active Substance: ALPELISIB
     Indication: Ovarian cancer
     Dosage: 200 MG, QD (DAILY)
     Route: 048
     Dates: start: 20221215
  2. PIQRAY [Suspect]
     Active Substance: ALPELISIB
     Dosage: UNK
     Route: 048
     Dates: start: 20230125
  3. OLAPARIB [Suspect]
     Active Substance: OLAPARIB
     Indication: Ovarian cancer
     Dosage: 400 MG, BID (2 TIMES PER DAY)
     Route: 048
     Dates: start: 20221215
  4. OLAPARIB [Suspect]
     Active Substance: OLAPARIB
     Dosage: UNK
     Route: 048
     Dates: start: 20230125
  5. POTASSIUM CHLORIDE [Concomitant]
     Active Substance: POTASSIUM CHLORIDE
     Indication: Hypokalaemia
     Dosage: UNK
     Route: 065
     Dates: start: 20230113, end: 20230119

REACTIONS (1)
  - Vomiting [Not Recovered/Not Resolved]

NARRATIVE: CASE EVENT DATE: 20230119
